FAERS Safety Report 20685099 (Version 1)
Quarter: 2022Q2

REPORT INFORMATION
  Report Type: Spontaneous
  Country: US (occurrence: US)
  Receive Date: 20220407
  Receipt Date: 20220407
  Transmission Date: 20220721
  Serious: No
  Sender: FDA-Public Use
  Company Number: US-LEO Pharma-341883

PATIENT
  Sex: Male

DRUGS (1)
  1. ADBRY [Suspect]
     Active Substance: TRALOKINUMAB-LDRM
     Indication: Dermatitis atopic
     Dosage: DOSAGE : INJECT 4 SYRINGES UNDER THE SKIN ON DAY 1 THEN 2 SYRINGES UNDER THE SKIN EVERY 2 WEEKS
     Route: 058
     Dates: start: 20220309

REACTIONS (1)
  - Eye disorder [Not Recovered/Not Resolved]
